FAERS Safety Report 6430108-0 (Version None)
Quarter: 2009Q4

REPORT INFORMATION
  Report Type: 
  Country: None (occurrence: None)
  Receive Date: 20091106
  Receipt Date: 20091021
  Transmission Date: 20100525
  Serious: Yes (Hospitalization, Congenital Anomaly)
  Sender: FDA-Public Use
  Company Number: PHHY2009KO47875

PATIENT
  Age: 22 Month
  Sex: Female

DRUGS (1)
  1. DICLOFENAC SODIUM [Suspect]
     Route: 064

REACTIONS (8)
  - ANAL ATRESIA [None]
  - APLASIA CUTIS CONGENITA [None]
  - CONGENITAL FOOT MALFORMATION [None]
  - DRUG EXPOSURE DURING PREGNANCY [None]
  - HYPOTONIA NEONATAL [None]
  - RED BLOOD CELL SEDIMENTATION RATE INCREASED [None]
  - SURGERY [None]
  - VISUAL IMPAIRMENT [None]
